FAERS Safety Report 7284103-2 (Version None)
Quarter: 2011Q1

REPORT INFORMATION
  Report Type: 
  Country: None (occurrence: None)
  Receive Date: 20110209
  Receipt Date: 20100408
  Transmission Date: 20110831
  Serious: Yes (Other)
  Sender: FDA-Public Use
  Company Number: US-PFIZER INC-2010045127

PATIENT
  Sex: Female

DRUGS (6)
  1. PROVENTIL GENTLEHALER [Concomitant]
     Indication: ASTHMA
     Dosage: UNK
  2. MONTELUKAST SODIUM [Concomitant]
     Indication: ASTHMA
     Dosage: UNK
  3. ADVAIR [Concomitant]
     Indication: ASTHMA
     Dosage: UNK
  4. CADUET [Suspect]
     Indication: HYPERTENSION
     Dosage: 5/10 MG
  5. FLONASE [Concomitant]
     Indication: ASTHMA
     Dosage: UNK
  6. CADUET [Suspect]
     Indication: BLOOD CHOLESTEROL

REACTIONS (3)
  - DYSPNOEA [None]
  - OEDEMA PERIPHERAL [None]
  - FATIGUE [None]
